FAERS Safety Report 23245878 (Version 1)
Quarter: 2023Q4

REPORT INFORMATION
  Report Type: Report from Study
  Country: IL (occurrence: IL)
  Receive Date: 20231130
  Receipt Date: 20231130
  Transmission Date: 20240110
  Serious: Yes (Other)
  Sender: FDA-Public Use
  Company Number: IL-002147023-NVSC2022IL133288

PATIENT
  Age: 33 Year
  Sex: Female
  Weight: 54 kg

DRUGS (4)
  1. SANDOSTATIN LAR DEPOT [Suspect]
     Active Substance: OCTREOTIDE ACETATE
     Indication: Acromegaly
     Dosage: 20 MG, Q4W (LAST INJECTION WAS ON 11 MAY 2022)
     Route: 030
     Dates: start: 20171128, end: 20220619
  2. SANDOSTATIN LAR DEPOT [Suspect]
     Active Substance: OCTREOTIDE ACETATE
     Dosage: 20 MG, Q4W
     Route: 030
  3. SANDOSTATIN LAR DEPOT [Suspect]
     Active Substance: OCTREOTIDE ACETATE
  4. MINIRIN [Concomitant]
     Active Substance: DESMOPRESSIN ACETATE
     Indication: Diabetes insipidus
     Dosage: 0.1MG (2-3/D)
     Route: 065

REACTIONS (3)
  - Uterine haematoma [Recovering/Resolving]
  - Premature delivery [Unknown]
  - Maternal exposure during pregnancy [Unknown]
